FAERS Safety Report 12935280 (Version 1)
Quarter: 2016Q4

REPORT INFORMATION
  Report Type: Spontaneous
  Country: US (occurrence: US)
  Receive Date: 20161114
  Receipt Date: 20161114
  Transmission Date: 20170207
  Serious: No
  Sender: FDA-Public Use
  Company Number: US-JAZZ-2016-US-018560

PATIENT
  Sex: Female

DRUGS (30)
  1. CALTRATE                           /00944201/ [Concomitant]
     Active Substance: CALCIUM CARBONATE\CHOLECALCIFEROL
  2. ROPINIROLE HCL [Concomitant]
     Active Substance: ROPINIROLE HYDROCHLORIDE
  3. TYLENOL ARTHRITIS PAIN [Concomitant]
     Active Substance: ACETAMINOPHEN
  4. VECTICAL [Concomitant]
     Active Substance: CALCITRIOL
  5. CRESTOR [Concomitant]
     Active Substance: ROSUVASTATIN CALCIUM
  6. XYREM [Suspect]
     Active Substance: SODIUM OXYBATE
     Indication: SOMNOLENCE
     Dosage: 2.25 G, BID
     Route: 048
     Dates: start: 201512, end: 201601
  7. XYREM [Suspect]
     Active Substance: SODIUM OXYBATE
     Dosage: 3 G, BID
     Route: 048
     Dates: start: 201601, end: 201603
  8. BACLOFEN. [Concomitant]
     Active Substance: BACLOFEN
  9. CLARITIN [Concomitant]
     Active Substance: LORATADINE
  10. PROAIR HFA [Concomitant]
     Active Substance: ALBUTEROL SULFATE
  11. MODAFINIL. [Concomitant]
     Active Substance: MODAFINIL
  12. VESICARE [Concomitant]
     Active Substance: SOLIFENACIN SUCCINATE
  13. ZOLOFT [Concomitant]
     Active Substance: SERTRALINE HYDROCHLORIDE
  14. RESTASIS [Concomitant]
     Active Substance: CYCLOSPORINE
  15. DOXEPIN [Concomitant]
     Active Substance: DOXEPIN
  16. REQUIP [Concomitant]
     Active Substance: ROPINIROLE HYDROCHLORIDE
  17. PRAMIPEXOLE. [Concomitant]
     Active Substance: PRAMIPEXOLE
  18. WELLBUTRIN [Concomitant]
     Active Substance: BUPROPION HYDROCHLORIDE
  19. ADDERALL [Concomitant]
     Active Substance: AMPHETAMINE ASPARTATE\AMPHETAMINE SULFATE\DEXTROAMPHETAMINE SACCHARATE\DEXTROAMPHETAMINE SULFATE
  20. CELEBREX [Concomitant]
     Active Substance: CELECOXIB
  21. XYREM [Suspect]
     Active Substance: SODIUM OXYBATE
     Dosage: 3.75 G, BID
     Route: 048
     Dates: start: 201603
  22. METHOCARBAMOL. [Concomitant]
     Active Substance: METHOCARBAMOL
  23. FOLIC ACID. [Concomitant]
     Active Substance: FOLIC ACID
  24. METHOTREXATE. [Concomitant]
     Active Substance: METHOTREXATE
  25. SUBOXONE [Concomitant]
     Active Substance: BUPRENORPHINE HYDROCHLORIDE\NALOXONE HYDROCHLORIDE
  26. MYRBETRIQ [Concomitant]
     Active Substance: MIRABEGRON
  27. REMICADE [Concomitant]
     Active Substance: INFLIXIMAB
  28. NEURONTIN [Concomitant]
     Active Substance: GABAPENTIN
  29. BETAMETHASONE. [Concomitant]
     Active Substance: BETAMETHASONE
  30. LUNESTA [Concomitant]
     Active Substance: ESZOPICLONE

REACTIONS (1)
  - Unevaluable event [Not Recovered/Not Resolved]
